FAERS Safety Report 7998706-0 (Version None)
Quarter: 2011Q4

REPORT INFORMATION
  Report Type: 
  Country: None (occurrence: None)
  Receive Date: 20111221
  Receipt Date: 20111219
  Transmission Date: 20120403
  Serious: Yes (Other)
  Sender: FDA-Public Use
  Company Number: GB-PFIZER INC-2011308590

PATIENT
  Age: 65 Year
  Sex: Female
  Weight: 71 kg

DRUGS (4)
  1. ADCAL-D3 [Concomitant]
     Indication: OSTEOPOROSIS
     Dosage: UNK
     Route: 048
     Dates: start: 20091015
  2. VARENICLINE TARTRATE [Suspect]
     Indication: EX-TOBACCO USER
     Dosage: 1 DF, UNK
     Route: 048
     Dates: start: 20111102, end: 20111112
  3. ACETAMINOPHEN AND CODEINE PHOSPHATE [Concomitant]
     Indication: PAIN
     Dosage: UNK
     Route: 048
     Dates: start: 20100525
  4. LETROZOLE [Concomitant]
     Indication: BREAST CANCER
     Dosage: 2.5 MG, 1X/DAY
     Route: 048
     Dates: start: 20091015

REACTIONS (6)
  - NAUSEA [None]
  - FEELING ABNORMAL [None]
  - SENSE OF OPPRESSION [None]
  - DECREASED INTEREST [None]
  - APATHY [None]
  - MENTAL IMPAIRMENT [None]
